FAERS Safety Report 8524808-6 (Version None)
Quarter: 2012Q3

REPORT INFORMATION
  Report Type: 
  Country: None (occurrence: None)
  Receive Date: 20120720
  Receipt Date: 20120716
  Transmission Date: 20120928
  Serious: Yes (Death)
  Sender: FDA-Public Use
  Company Number: US-GLAXOSMITHKLINE-A0985290A

PATIENT
  Age: 78 Year
  Sex: Male

DRUGS (1)
  1. MEPRON [Suspect]
     Indication: PRODUCT USED FOR UNKNOWN INDICATION
     Dosage: 750MG UNKNOWN
     Route: 065
     Dates: start: 20111027, end: 20120714

REACTIONS (1)
  - DEATH [None]
